FAERS Safety Report 26064890 (Version 2)
Quarter: 2025Q4

REPORT INFORMATION
  Report Type: Spontaneous
  Country: JP (occurrence: JP)
  Receive Date: 20251119
  Receipt Date: 20251128
  Transmission Date: 20260118
  Serious: No
  Sender: NOVARTIS
  Company Number: JP-002147023-NVSJ2024JP014139

PATIENT
  Age: 40 Year
  Sex: Female

DRUGS (2)
  1. KESIMPTA [Suspect]
     Active Substance: OFATUMUMAB
     Indication: Multiple sclerosis relapse
     Dosage: MAINTENANCE PERIOD: 20 MG, Q4W
     Route: 058
  2. KESIMPTA [Suspect]
     Active Substance: OFATUMUMAB
     Dosage: MAINTENANCE PERIOD, 20 MG, 4W
     Route: 058

REACTIONS (4)
  - Palmoplantar pustulosis [Recovered/Resolved]
  - Arthralgia [Recovering/Resolving]
  - Pustule [Recovering/Resolving]
  - Eczema [Recovering/Resolving]
